FAERS Safety Report 6079845-0 (Version None)
Quarter: 2009Q1

REPORT INFORMATION
  Report Type: 
  Country: None (occurrence: None)
  Receive Date: 20090217
  Receipt Date: 20090209
  Transmission Date: 20090719
  Serious: Yes (Hospitalization)
  Sender: FDA-Public Use
  Company Number: BR-BIOGENIDEC-2009BI004540

PATIENT
  Age: 31 Year
  Sex: Female

DRUGS (2)
  1. AVONEX [Suspect]
     Indication: MULTIPLE SCLEROSIS
     Route: 030
     Dates: start: 20080902
  2. LISADOR [Concomitant]
     Indication: PROPHYLAXIS
     Dates: start: 20080902

REACTIONS (2)
  - ABDOMINOPLASTY [None]
  - INFLUENZA LIKE ILLNESS [None]
